FAERS Safety Report 6470856-X (Version None)
Quarter: 2009Q4

REPORT INFORMATION
  Report Type: 
  Country: None (occurrence: None)
  Receive Date: 20091203
  Receipt Date: 20080304
  Transmission Date: 20100525
  Serious: Yes (Other)
  Sender: FDA-Public Use
  Company Number: US-ELI_LILLY_AND_COMPANY-US200801005282

PATIENT
  Sex: Male

DRUGS (4)
  1. HUMALOG [Suspect]
  2. HUMALOG [Suspect]
  3. ASPIRIN [Concomitant]
  4. CORTICOSTEROIDS [Concomitant]

REACTIONS (5)
  - EYE HAEMORRHAGE [None]
  - NORMAL TENSION GLAUCOMA [None]
  - OPTIC NEUROPATHY [None]
  - VISUAL ACUITY REDUCED [None]
  - VISUAL FIELD DEFECT [None]
